FAERS Safety Report 5157636-2 (Version None)
Quarter: 2006Q4

REPORT INFORMATION
  Report Type: 
  Country: None (occurrence: None)
  Receive Date: 20061127
  Receipt Date: 20061120
  Transmission Date: 20070319
  Serious: Yes (Hospitalization)
  Sender: FDA-Public Use
  Company Number: ES-BRISTOL-MYERS SQUIBB COMPANY-13584974

PATIENT
  Age: 61 Year
  Sex: Female

DRUGS (4)
  1. TAXOL [Suspect]
     Indication: BREAST CANCER
     Route: 042
     Dates: start: 20061101, end: 20061101
  2. CYCLOPHOSPHAMIDE [Suspect]
     Indication: BREAST CANCER
     Dates: start: 20060907
  3. FLUOROURACIL [Suspect]
     Indication: BREAST CANCER
     Dates: start: 20060907
  4. DOXORUBICIN HCL [Suspect]
     Indication: BREAST CANCER
     Dates: start: 20060907

REACTIONS (1)
  - PULMONARY EMBOLISM [None]
